FAERS Safety Report 9330090 (Version 1)
Quarter: 2013Q2

REPORT INFORMATION
  Report Type: Spontaneous
  Country: JP (occurrence: JP)
  Receive Date: 20130604
  Receipt Date: 20130604
  Transmission Date: 20140414
  Serious: Yes (Other)
  Sender: FDA-Public Use
  Company Number: JP-LUNDBECK-DKLU1091397

PATIENT
  Age: 36 Year
  Sex: Male

DRUGS (7)
  1. ONFI [Suspect]
     Indication: LENNOX-GASTAUT SYNDROME
  2. SODIUM VALPROATE [Concomitant]
     Indication: LENNOX-GASTAUT SYNDROME
  3. CARBAMAZEPINE [Concomitant]
     Indication: LENNOX-GASTAUT SYNDROME
  4. ZONISAMIDE [Concomitant]
     Indication: LENNOX-GASTAUT SYNDROME
  5. CLONAZEPAM [Concomitant]
     Indication: LENNOX-GASTAUT SYNDROME
  6. PHENYTOIN [Concomitant]
     Indication: LENNOX-GASTAUT SYNDROME
  7. GABAPENTIN [Concomitant]
     Indication: LENNOX-GASTAUT SYNDROME

REACTIONS (3)
  - Hyporesponsive to stimuli [Recovering/Resolving]
  - Pneumonia aspiration [Recovering/Resolving]
  - Somnolence [Recovering/Resolving]
